FAERS Safety Report 5059759-5 (Version None)
Quarter: 2006Q3

REPORT INFORMATION
  Report Type: 
  Country: None (occurrence: None)
  Receive Date: 20060724
  Receipt Date: 20060710
  Transmission Date: 20061208
  Serious: Yes (Disabling)
  Sender: FDA-Public Use
  Company Number: PHRM2006FR02064

PATIENT
  Age: 68 Year
  Sex: Female
  Weight: 61 kg

DRUGS (1)
  1. AREDIA [Suspect]
     Indication: MULTIPLE MYELOMA
     Dosage: 90 MG, QMO
     Route: 042
     Dates: start: 20010805, end: 20040605

REACTIONS (11)
  - BONE DEBRIDEMENT [None]
  - BONE DISORDER [None]
  - DISEASE PROGRESSION [None]
  - FISTULA [None]
  - HAEMORRHAGE [None]
  - IMPAIRED HEALING [None]
  - INFLAMMATION [None]
  - OSTEONECROSIS [None]
  - OSTEOSYNTHESIS [None]
  - PURULENT DISCHARGE [None]
  - RESORPTION BONE INCREASED [None]
